FAERS Safety Report 5158211-6 (Version None)
Quarter: 2006Q4

REPORT INFORMATION
  Report Type: 
  Country: None (occurrence: None)
  Receive Date: 20061128
  Receipt Date: 20060630
  Transmission Date: 20070319
  Serious: Yes (Hospitalization)
  Sender: FDA-Public Use
  Company Number: PHBS2006JP10012

PATIENT
  Age: 63 Year
  Sex: Male
  Weight: 70 kg

DRUGS (3)
  1. LAMISIL [Suspect]
     Indication: NAIL TINEA
     Dosage: 125 MG/D
     Route: 048
     Dates: start: 20060425, end: 20060522
  2. MINOCYCLINE HCL [Suspect]
     Indication: PRURIGO
     Dosage: 100 MG/DAY
     Route: 048
     Dates: start: 20060417, end: 20060522
  3. OREN-GEDOKU-TO [Suspect]
     Indication: PRURIGO
     Dosage: 7.5 MG/DAY
     Route: 048
     Dates: start: 20060417, end: 20060522

REACTIONS (11)
  - BLOOD LACTATE DEHYDROGENASE INCREASED [None]
  - COMPUTERISED TOMOGRAM THORAX ABNORMAL [None]
  - DYSPNOEA [None]
  - EOSINOPHIL COUNT INCREASED [None]
  - EOSINOPHIL PERCENTAGE INCREASED [None]
  - EOSINOPHILIC PNEUMONIA [None]
  - INFLUENZA LIKE ILLNESS [None]
  - LYMPHOCYTE PERCENTAGE DECREASED [None]
  - LYMPHOCYTE STIMULATION TEST POSITIVE [None]
  - NEUTROPHIL PERCENTAGE DECREASED [None]
  - WHITE BLOOD CELL COUNT INCREASED [None]
